FAERS Safety Report 12306651 (Version 1)
Quarter: 2016Q2

REPORT INFORMATION
  Report Type: Other
  Country: US (occurrence: US)
  Receive Date: 20160426
  Receipt Date: 20160426
  Transmission Date: 20160815
  Serious: No
  Sender: FDA-Public Use
  Company Number: US-ALKERMES INC.-ALK-2016-000559

PATIENT

DRUGS (1)
  1. VIVITROL [Suspect]
     Active Substance: NALTREXONE
     Indication: PRODUCT USED FOR UNKNOWN INDICATION
     Dosage: 380 MG, UNK
     Route: 030

REACTIONS (9)
  - Palpitations [Unknown]
  - Influenza like illness [Unknown]
  - Dizziness [Unknown]
  - Feeling abnormal [Unknown]
  - Mood swings [Unknown]
  - Drug ineffective [Unknown]
  - Decreased activity [Unknown]
  - Fluid retention [Unknown]
  - Constipation [Unknown]
